FAERS Safety Report 12065722 (Version 1)
Quarter: 2016Q1

REPORT INFORMATION
  Report Type: Spontaneous
  Country: US (occurrence: US)
  Receive Date: 20160211
  Receipt Date: 20160211
  Transmission Date: 20160526
  Serious: No
  Sender: FDA-Public Use
  Company Number: US-PFIZER INC-2016077583

PATIENT
  Sex: Female

DRUGS (1)
  1. LYRICA [Suspect]
     Active Substance: PREGABALIN
     Dosage: UNK

REACTIONS (10)
  - Anxiety [Unknown]
  - Paraesthesia [Unknown]
  - Disturbance in attention [Unknown]
  - Agitation [Unknown]
  - Eye swelling [Unknown]
  - Weight increased [Unknown]
  - Anger [Unknown]
  - Aggression [Unknown]
  - Swelling [Unknown]
  - Vision blurred [Unknown]
